FAERS Safety Report 8345967-4 (Version None)
Quarter: 2012Q2

REPORT INFORMATION
  Report Type: 
  Country: None (occurrence: None)
  Receive Date: 20120507
  Receipt Date: 20120426
  Transmission Date: 20120825
  Serious: Yes (Hospitalization)
  Sender: FDA-Public Use
  Company Number: 2012SP021996

PATIENT
  Age: 61 Year
  Sex: Male
  Weight: 62 kg

DRUGS (11)
  1. XYZAL [Concomitant]
  2. TELAVIC (ANTIVIRALS NOS) [Suspect]
     Indication: HEPATITIS C
     Dosage: 2250 MG;QD;PO ; 1500 MG;QD;PO
     Route: 048
     Dates: start: 20120221, end: 20120318
  3. TELAVIC (ANTIVIRALS NOS) [Suspect]
     Indication: HEPATITIS C
     Dosage: 2250 MG;QD;PO ; 1500 MG;QD;PO
     Route: 048
     Dates: start: 20120319, end: 20120401
  4. REBETOL [Suspect]
     Indication: HEPATITIS C
     Dosage: 800 MG;QD;PO ; 600 MG;QD;PO ; 400 MG;QD;PO
     Route: 048
     Dates: start: 20120313, end: 20120318
  5. REBETOL [Suspect]
     Indication: HEPATITIS C
     Dosage: 800 MG;QD;PO ; 600 MG;QD;PO ; 400 MG;QD;PO
     Route: 048
     Dates: start: 20120319
  6. REBETOL [Suspect]
     Indication: HEPATITIS C
     Dosage: 800 MG;QD;PO ; 600 MG;QD;PO ; 400 MG;QD;PO
     Route: 048
     Dates: start: 20120221, end: 20120312
  7. FEBURIC [Concomitant]
  8. PEGINTERFERON ALFA-2B [Suspect]
     Indication: HEPATITIS C
     Dosage: 1.6 MCG/KG;QW;SC ; 1.28 MCG/KG;QW;SC
     Route: 058
     Dates: start: 20120221, end: 20120318
  9. PEGINTERFERON ALFA-2B [Suspect]
     Indication: HEPATITIS C
     Dosage: 1.6 MCG/KG;QW;SC ; 1.28 MCG/KG;QW;SC
     Route: 058
     Dates: start: 20120319, end: 20120401
  10. ALLOPURINOL [Concomitant]
  11. GASMOTIN [Concomitant]

REACTIONS (6)
  - BLOOD URIC ACID INCREASED [None]
  - BLOOD CREATININE INCREASED [None]
  - NAUSEA [None]
  - WHITE BLOOD CELL COUNT DECREASED [None]
  - CYSTITIS HAEMORRHAGIC [None]
  - ANAEMIA [None]
